FAERS Safety Report 17296779 (Version 3)
Quarter: 2020Q3

REPORT INFORMATION
  Report Type: Spontaneous
  Country: US (occurrence: US)
  Receive Date: 20200121
  Receipt Date: 20200814
  Transmission Date: 20201102
  Serious: No
  Sender: FDA-Public Use
  Company Number: US-009507513-2001USA007039

PATIENT
  Sex: Female

DRUGS (1)
  1. NEXPLANON [Suspect]
     Active Substance: ETONOGESTREL
     Indication: CONTRACEPTION
     Dosage: 68 MILLIGRAM (1 IMPLANT), CONTINUOUS, IN UPPER ARM
     Route: 059
     Dates: start: 201803

REACTIONS (1)
  - Acne [Unknown]
